FAERS Safety Report 10924452 (Version 2)
Quarter: 2015Q2

REPORT INFORMATION
  Report Type: Spontaneous
  Country: US (occurrence: US)
  Receive Date: 20150318
  Receipt Date: 20150524
  Transmission Date: 20150821
  Serious: No
  Sender: FDA-Public Use
  Company Number: US-JNJFOC-20121106865

PATIENT

DRUGS (2)
  1. REMOGLIFLOZIN ETABONATE [Interacting]
     Active Substance: REMOGLIFLOZIN ETABONATE
     Indication: PRODUCT USED FOR UNKNOWN INDICATION
     Dosage: SINGLE DOSE
     Route: 065
  2. KETOCONAZOLE. [Suspect]
     Active Substance: KETOCONAZOLE
     Indication: PRODUCT USED FOR UNKNOWN INDICATION
     Route: 065

REACTIONS (9)
  - Contusion [Unknown]
  - Drug interaction [Unknown]
  - Vomiting [Unknown]
  - Post procedural complication [Unknown]
  - Furuncle [Unknown]
  - Eye pain [Unknown]
  - Headache [Unknown]
  - Nausea [Unknown]
  - Sinus congestion [Unknown]
